FAERS Safety Report 6412943-8 (Version None)
Quarter: 2009Q4

REPORT INFORMATION
  Report Type: 
  Country: None (occurrence: None)
  Receive Date: 20091023
  Receipt Date: 20091013
  Transmission Date: 20100525
  Serious: Yes (Other)
  Sender: FDA-Public Use
  Company Number: US-JNJCH-2009027684

PATIENT
  Age: 46 Year
  Sex: Male

DRUGS (7)
  1. DIPHENHYDRAMINE HCL [Suspect]
     Indication: DRUG USE FOR UNKNOWN INDICATION
     Dosage: TEXT:30 TABLETS UNSPECIFIED
     Route: 048
  2. HALOPERIDOL [Suspect]
     Indication: DRUG USE FOR UNKNOWN INDICATION
     Dosage: TEXT:30 TABLETS UNSPECIFIED
     Route: 048
  3. ANALGESIC COMBINATION [Suspect]
     Indication: DRUG USE FOR UNKNOWN INDICATION
     Dosage: TEXT:20 TABLETS UNSPECIFIED
     Route: 048
  4. AMRIX [Suspect]
     Indication: DRUG USE FOR UNKNOWN INDICATION
     Dosage: TEXT:20 TABLETS UNSPECIFIED
     Route: 048
  5. NAPROXEN [Suspect]
     Indication: DRUG USE FOR UNKNOWN INDICATION
     Dosage: TEXT:20 TABLETS UNSPECIFIED
     Route: 048
  6. CEPHALEXIN [Suspect]
     Indication: DRUG USE FOR UNKNOWN INDICATION
     Dosage: TEXT:14 TABLETS UNSPECIFIED
     Route: 048
  7. CHLORZOXAZONE [Suspect]
     Indication: DRUG USE FOR UNKNOWN INDICATION
     Dosage: TEXT:48 TABLETS UNSPECIFIED
     Route: 048

REACTIONS (2)
  - METHAEMOGLOBINAEMIA [None]
  - OVERDOSE [None]
